FAERS Safety Report 9999959 (Version 1)
Quarter: 2014Q1

REPORT INFORMATION
  Report Type: Spontaneous
  Country: US (occurrence: None)
  Receive Date: 20140227
  Receipt Date: 20140227
  Transmission Date: 20141002
  Serious: Yes (Other)
  Sender: FDA-Public Use
  Company Number: DEP_01254_2013

PATIENT
  Age: 29 Year
  Sex: Female

DRUGS (6)
  1. GRALISE [Suspect]
     Indication: PAIN
     Dosage: (FREQUENCY UNSPECIFIED)
     Dates: start: 20130529, end: 201309
  2. GRALISE [Suspect]
     Indication: OFF LABEL USE
     Dosage: (FREQUENCY UNSPECIFIED)
     Dates: start: 20130529, end: 201309
  3. OXYCODONE [Suspect]
     Indication: PAIN
     Dosage: (FREQUENCY  UNSPECIFIED) (THERAPY UNTIL NOT CONTINUING)
  4. OPANA [Suspect]
     Indication: PAIN
     Dosage: (FREQUENCY NOT SPECIFIED) (UNKNOWN THERAPY
  5. KLONOPIN [Suspect]
     Indication: PAIN
     Dosage: (FREQUENCY  NOT SPECIFIED) (UNKNOWN UNTIL NOT CONTINUING)
  6. CYCLOBENZAPRINE [Suspect]
     Indication: PAIN
     Dosage: (FREQUENCY UNSPECIFIED) UNTIL NOT CONTINUING)

REACTIONS (2)
  - Drug withdrawal syndrome [None]
  - Suicidal ideation [None]
